FAERS Safety Report 7210450-6 (Version None)
Quarter: 2011Q1

REPORT INFORMATION
  Report Type: 
  Country: None (occurrence: None)
  Receive Date: 20110105
  Receipt Date: 20101223
  Transmission Date: 20110831
  Serious: Yes (Hospitalization)
  Sender: FDA-Public Use
  Company Number: ES-ELI_LILLY_AND_COMPANY-ES201012005771

PATIENT
  Sex: Female
  Weight: 64 kg

DRUGS (5)
  1. ENALAPRIL MALEATE [Concomitant]
     Dosage: 20 MG, DAILY (1/D)
  2. NATECAL [Concomitant]
     Dosage: UNK, DAILY (1/D)
  3. TROMALYT [Concomitant]
     Dosage: 300 MG, DAILY (1/D)
  4. PARACETAMOL [Concomitant]
     Dosage: 1 G, AS NEEDED
  5. FORTEO [Suspect]
     Indication: OSTEOPOROSIS
     Dosage: 20 UG, DAILY (1/D)
     Route: 058

REACTIONS (5)
  - FALL [None]
  - DIZZINESS [None]
  - LOWER LIMB FRACTURE [None]
  - WRIST FRACTURE [None]
  - CONTUSION [None]
